FAERS Safety Report 25102648 (Version 1)
Quarter: 2025Q1

REPORT INFORMATION
  Report Type: Spontaneous
  Country: US (occurrence: US)
  Receive Date: 20250321
  Receipt Date: 20250321
  Transmission Date: 20250408
  Serious: Yes (Other)
  Sender: RANBAXY
  Company Number: US-SUN PHARMACEUTICAL INDUSTRIES LTD-2025R1-499502

PATIENT
  Age: 11 Year
  Sex: Female

DRUGS (2)
  1. METFORMIN [Suspect]
     Active Substance: METFORMIN HYDROCHLORIDE
     Indication: Type 2 diabetes mellitus
     Route: 065
  2. DEXAMETHASONE [Concomitant]
     Active Substance: DEXAMETHASONE
     Indication: Ganglioglioma
     Dosage: 5 MILLIGRAM, DAILY
     Route: 065

REACTIONS (4)
  - Condition aggravated [Unknown]
  - Muscular weakness [Unknown]
  - Dysphagia [Unknown]
  - Gait disturbance [Unknown]
